FAERS Safety Report 15841441 (Version 1)
Quarter: 2019Q1

REPORT INFORMATION
  Report Type: Spontaneous
  Country: JP (occurrence: JP)
  Receive Date: 20190118
  Receipt Date: 20190118
  Transmission Date: 20190417
  Serious: Yes (Death, Hospitalization, Other)
  Sender: FDA-Public Use
  Company Number: JP-SA-2018SA337868

PATIENT
  Age: 77 Year
  Sex: Male

DRUGS (4)
  1. OXALIPLATIN. [Suspect]
     Active Substance: OXALIPLATIN
     Indication: METASTASES TO LIVER
     Dosage: UNK UNK, UNK
     Route: 065
  2. FLUOROURACIL. [Suspect]
     Active Substance: FLUOROURACIL
     Indication: METASTASES TO LIVER
     Dosage: UNK UNK, UNK
     Route: 065
  3. FOLINIC ACID [Suspect]
     Active Substance: LEUCOVORIN
     Indication: METASTASES TO LIVER
  4. BEVACIZUMAB. [Suspect]
     Active Substance: BEVACIZUMAB
     Indication: METASTASES TO LIVER
     Dosage: UNK UNK, UNK
     Route: 065

REACTIONS (10)
  - Infusion site pain [Unknown]
  - Infusion site infection [Unknown]
  - Vascular pseudoaneurysm [Unknown]
  - Metastases to liver [Fatal]
  - Pyrexia [Unknown]
  - Therapeutic response decreased [Unknown]
  - Infusion site extravasation [Unknown]
  - Infusion site erythema [Unknown]
  - Infusion site swelling [Unknown]
  - Decreased appetite [Unknown]

NARRATIVE: CASE EVENT DATE: 2009
